FAERS Safety Report 7279394-8 (Version None)
Quarter: 2011Q1

REPORT INFORMATION
  Report Type: 
  Country: None (occurrence: None)
  Receive Date: 20110208
  Receipt Date: 20110202
  Transmission Date: 20110831
  Serious: Yes (Other)
  Sender: FDA-Public Use
  Company Number: JP-BIOGENIDEC-2010BI022987

PATIENT
  Age: 62 Year
  Sex: Female

DRUGS (3)
  1. LEVOTHYROXINE SODIUM [Concomitant]
     Dates: start: 20010101
  2. ALFACALCIDOL [Concomitant]
     Dates: start: 20051128
  3. TYSABRI [Suspect]
     Indication: MULTIPLE SCLEROSIS
     Dates: start: 20100413, end: 20100511

REACTIONS (1)
  - RETINAL DETACHMENT [None]
